FAERS Safety Report 23266972 (Version 2)
Quarter: 2023Q4

REPORT INFORMATION
  Report Type: Spontaneous
  Country: CH (occurrence: CH)
  Receive Date: 20231206
  Receipt Date: 20231214
  Transmission Date: 20240110
  Serious: Yes (Death, Other)
  Sender: FDA-Public Use
  Company Number: CH-INCYTE CORPORATION-2023IN012582

PATIENT

DRUGS (1)
  1. PEMAZYRE [Suspect]
     Active Substance: PEMIGATINIB
     Dosage: 13.5 MILLIGRAM, D1-D14, 1X IN THE MORNING
     Route: 065
     Dates: start: 20220324

REACTIONS (1)
  - Death [Fatal]
